FAERS Safety Report 18309114 (Version 1)
Quarter: 2020Q3

REPORT INFORMATION
  Report Type: Spontaneous
  Country: AT (occurrence: AT)
  Receive Date: 20200924
  Receipt Date: 20200924
  Transmission Date: 20201103
  Serious: Yes (Other)
  Sender: FDA-Public Use
  Company Number: AT-JNJFOC-20200926522

PATIENT
  Age: 43 Year
  Sex: Male

DRUGS (3)
  1. STELARA [Suspect]
     Active Substance: USTEKINUMAB
     Indication: CROHN^S DISEASE
     Route: 058
  2. VITAMIN D3 [Concomitant]
     Active Substance: CHOLECALCIFEROL
  3. FOLSAN [Concomitant]
     Active Substance: FOLIC ACID

REACTIONS (10)
  - Vasodilatation [Recovering/Resolving]
  - Paraesthesia [Recovering/Resolving]
  - Body temperature decreased [Recovering/Resolving]
  - Anal fistula [Not Recovered/Not Resolved]
  - Constipation [Recovering/Resolving]
  - Swelling face [Recovering/Resolving]
  - Oropharyngeal swelling [Recovering/Resolving]
  - Hypoaesthesia [Recovering/Resolving]
  - Pain in extremity [Recovering/Resolving]
  - Peripheral swelling [Recovering/Resolving]

NARRATIVE: CASE EVENT DATE: 202007
